FAERS Safety Report 5822059-7 (Version None)
Quarter: 2008Q3

REPORT INFORMATION
  Report Type: 
  Country: None (occurrence: None)
  Receive Date: 20080725
  Receipt Date: 20080721
  Transmission Date: 20090109
  Serious: Yes (Death, Hospitalization)
  Sender: FDA-Public Use
  Company Number: BR-BAYER-200815302LA

PATIENT
  Age: 58 Year
  Sex: Female

DRUGS (6)
  1. BETAFERON [Suspect]
     Indication: MULTIPLE SCLEROSIS
     Route: 058
  2. ACETAMINOPHEN [Concomitant]
     Indication: PAIN
     Route: 065
  3. TRAMADOL HCL [Concomitant]
     Indication: PAIN
     Route: 065
  4. BACLOFEN [Concomitant]
     Indication: MULTIPLE SCLEROSIS
     Dosage: TOTAL DAILY DOSE: 1 DF
     Route: 048
  5. OXYBUTYNIN [Concomitant]
     Indication: URINARY INCONTINENCE
     Dosage: TOTAL DAILY DOSE: 1 DF
     Route: 048
  6. RANITIDINE HCL [Concomitant]
     Indication: PROPHYLAXIS
     Route: 048

REACTIONS (3)
  - ACUTE MYOCARDIAL INFARCTION [None]
  - DIARRHOEA [None]
  - NERVOUS SYSTEM DISORDER [None]
